FAERS Safety Report 4722889-9 (Version None)
Quarter: 2005Q3

REPORT INFORMATION
  Report Type: 
  Country: None (occurrence: None)
  Receive Date: 20050722
  Receipt Date: 20050623
  Transmission Date: 20060218
  Serious: Yes (Death)
  Sender: FDA-Public Use
  Company Number: US-BOEHRINGER INGELHEIM PHARMACEUTICALS, INC.-2005-BP-10686BP

PATIENT
  Sex: Male
  Weight: 60 kg

DRUGS (12)
  1. TIPRANAVIR / RITONAVIR CAPSULES [Suspect]
     Indication: HIV INFECTION
     Dosage: TPV/R 1000/200 MG
     Route: 048
     Dates: start: 20030812, end: 20040330
  2. TIPRANAVIR / RITONAVIR CAPSULES [Suspect]
     Dosage: TPV/R 1000/200
     Route: 048
     Dates: start: 20040408, end: 20041220
  3. ANDROGEL [Concomitant]
     Indication: CACHEXIA
     Dosage: 1% QD
     Route: 048
  4. FAMCICLOVIR [Concomitant]
     Indication: HIV INFECTION
     Dosage: TID
     Route: 048
     Dates: start: 20050101
  5. MEGASTROL ACETATE [Concomitant]
     Indication: CACHEXIA
     Dosage: BID
     Route: 048
     Dates: start: 20050101
  6. CLINDAMYCIN [Concomitant]
     Indication: PROPHYLAXIS
     Dosage: TID
     Route: 048
     Dates: start: 19960301
  7. GANCYCLOVIR [Concomitant]
     Indication: CYTOMEGALOVIRUS CHORIORETINITIS
     Dates: start: 20010901
  8. DAPSONE [Concomitant]
     Indication: PROPHYLAXIS
     Dosage: QD
     Route: 048
     Dates: start: 20010101
  9. DARAPRIM [Concomitant]
     Indication: PROPHYLAXIS
     Dosage: QD
     Route: 048
     Dates: start: 19960301
  10. LEUCOVORIN CALCIUM [Concomitant]
     Indication: PROPHYLAXIS
     Dosage: QD
     Route: 048
     Dates: start: 19960301
  11. POSACONAZOLE [Concomitant]
     Indication: ORAL CANDIDIASIS
     Dosage: BID
     Route: 048
     Dates: start: 20031117
  12. PYRIMETHAMINE [Concomitant]
     Indication: CEREBRAL TOXOPLASMOSIS
     Route: 048
     Dates: start: 20040407

REACTIONS (1)
  - HIV WASTING SYNDROME [None]
